FAERS Safety Report 5319529-7 (Version None)
Quarter: 2007Q2

REPORT INFORMATION
  Report Type: 
  Country: None (occurrence: None)
  Receive Date: 20070508
  Receipt Date: 20070427
  Transmission Date: 20071010
  Serious: Yes (Other)
  Sender: FDA-Public Use
  Company Number: CH-PFIZER INC-2007034127

PATIENT
  Age: 43 Year
  Sex: Male

DRUGS (1)
  1. ALDACTONE [Suspect]
     Route: 048

REACTIONS (2)
  - GYNAECOMASTIA [None]
  - HEPATIC NEOPLASM MALIGNANT [None]
